FAERS Safety Report 13831998 (Version 1)
Quarter: 2017Q3

REPORT INFORMATION
  Report Type: Spontaneous
  Country: US (occurrence: US)
  Receive Date: 20170803
  Receipt Date: 20170803
  Transmission Date: 20171127
  Serious: Yes (Other)
  Sender: FDA-Public Use
  Company Number: US-ROCHE-691556

PATIENT
  Sex: Female
  Weight: 50 kg

DRUGS (1)
  1. BONIVA [Suspect]
     Active Substance: IBANDRONATE SODIUM
     Indication: OSTEOPENIA
     Dosage: OTHER INDICATION : PREVENTION OF OSTEOPOROSIS
     Route: 048
     Dates: start: 2007, end: 201003

REACTIONS (1)
  - Blood pressure increased [Unknown]
